FAERS Safety Report 11032939 (Version 4)
Quarter: 2016Q3

REPORT INFORMATION
  Report Type: Spontaneous
  Country: US (occurrence: US)
  Receive Date: 20150415
  Receipt Date: 20160701
  Transmission Date: 20161109
  Serious: Yes (Other)
  Sender: FDA-Public Use
  Company Number: US-009507513-1504USA015046

PATIENT
  Sex: Male

DRUGS (7)
  1. PROSCAR [Suspect]
     Active Substance: FINASTERIDE
     Indication: ANDROGENETIC ALOPECIA
     Dosage: CUT TABLET IN 4 AND TAKE 1.25 QD
     Route: 048
     Dates: start: 20000721, end: 20060315
  2. FINASTERIDE. [Suspect]
     Active Substance: FINASTERIDE
     Indication: ANDROGENETIC ALOPECIA
     Dosage: 5MG TAB SPLIT IN 4
     Route: 048
     Dates: start: 20060815, end: 20061217
  3. PROPECIA [Suspect]
     Active Substance: FINASTERIDE
     Indication: ANDROGENETIC ALOPECIA
     Dosage: 1 MG, QD
     Route: 048
     Dates: start: 200006, end: 200007
  4. FINASTERIDE. [Suspect]
     Active Substance: FINASTERIDE
     Indication: ANDROGENETIC ALOPECIA
     Dosage: UNK, UNKNOWN
     Route: 048
     Dates: start: 20110317, end: 20110424
  5. FINASTERIDE. [Suspect]
     Active Substance: FINASTERIDE
     Indication: ANDROGENETIC ALOPECIA
     Dosage: UNK, UNKNOWN
     Route: 048
     Dates: start: 20070425, end: 20080428
  6. FINASTERIDE. [Suspect]
     Active Substance: FINASTERIDE
     Indication: ANDROGENETIC ALOPECIA
     Dosage: UNK, UNKNOWN
     Route: 048
     Dates: start: 20091026, end: 20110205
  7. FINASTERIDE. [Suspect]
     Active Substance: FINASTERIDE
     Indication: ANDROGENETIC ALOPECIA
     Dosage: UNK, UNKNOWN
     Route: 048
     Dates: start: 20081231, end: 20090910

REACTIONS (14)
  - Penis injury [Not Recovered/Not Resolved]
  - Endocrine disorder [Not Recovered/Not Resolved]
  - Hormone level abnormal [Unknown]
  - Painful ejaculation [Unknown]
  - Loss of libido [Unknown]
  - Brain injury [Not Recovered/Not Resolved]
  - Shoulder operation [Unknown]
  - Penile size reduced [Unknown]
  - Wrong technique in product usage process [Unknown]
  - Erectile dysfunction [Not Recovered/Not Resolved]
  - Sexual dysfunction [Not Recovered/Not Resolved]
  - Anxiety [Not Recovered/Not Resolved]
  - Drug administration error [Unknown]
  - Depression [Not Recovered/Not Resolved]

NARRATIVE: CASE EVENT DATE: 2000
